FAERS Safety Report 10308896 (Version 1)
Quarter: 2014Q3

REPORT INFORMATION
  Report Type: Spontaneous
  Country: US (occurrence: None)
  Receive Date: 20140714
  Receipt Date: 20140714
  Transmission Date: 20150326
  Serious: Yes (Death)
  Sender: FDA-Public Use
  Company Number: INS201407-000123

PATIENT
  Sex: Female
  Weight: 45.35 kg

DRUGS (2)
  1. SUBSYS [Suspect]
     Active Substance: FENTANYL
     Indication: BREAKTHROUGH PAIN
     Dates: start: 20140605
  2. OXYCODONE (OXYCODONE) (OXYCODONE) [Concomitant]
     Active Substance: OXYCODONE

REACTIONS (1)
  - Death [None]
